FAERS Safety Report 24323267 (Version 1)
Quarter: 2024Q3

REPORT INFORMATION
  Report Type: Report from Study
  Country: CA (occurrence: CA)
  Receive Date: 20240916
  Receipt Date: 20240916
  Transmission Date: 20241017
  Serious: Yes (Death)
  Sender: BAYER
  Company Number: CA-BAYER-2024A131020

PATIENT
  Age: 81 Year
  Sex: Female

DRUGS (1)
  1. ADEMPAS [Suspect]
     Active Substance: RIOCIGUAT
     Indication: Pulmonary arterial hypertension
     Dosage: 0.5 MG, BID
     Dates: start: 20220804, end: 202408

REACTIONS (2)
  - Death [Fatal]
  - Inappropriate schedule of product administration [None]

NARRATIVE: CASE EVENT DATE: 20240801
